FAERS Safety Report 9411144 (Version 2)
Quarter: 2013Q3

REPORT INFORMATION
  Report Type: Spontaneous
  Country: JP (occurrence: JP)
  Receive Date: 20130721
  Receipt Date: 20130814
  Transmission Date: 20140515
  Serious: No
  Sender: FDA-Public Use
  Company Number: CHNY2013JP001539

PATIENT
  Age: 57 Year
  Sex: Female

DRUGS (1)
  1. LAMISIL [Suspect]
     Indication: TINEA INFECTION
     Dosage: UNK, UNK
     Route: 048
     Dates: start: 20120712

REACTIONS (1)
  - Incorrect route of drug administration [Unknown]
